FAERS Safety Report 16416913 (Version 3)
Quarter: 2019Q3

REPORT INFORMATION
  Report Type: Spontaneous
  Country: US (occurrence: US)
  Receive Date: 20190611
  Receipt Date: 20190716
  Transmission Date: 20191004
  Serious: Yes (Other)
  Sender: FDA-Public Use
  Company Number: US-ASTRAZENECA-2018SF33540

PATIENT
  Age: 58 Year
  Sex: Female

DRUGS (22)
  1. NEXIUM 24HR [Suspect]
     Active Substance: ESOMEPRAZOLE MAGNESIUM
     Indication: GASTROOESOPHAGEAL REFLUX DISEASE
     Route: 048
     Dates: start: 199901, end: 201710
  2. PROTONIX [Suspect]
     Active Substance: PANTOPRAZOLE SODIUM
     Route: 065
     Dates: start: 199901, end: 201710
  3. GLIPIZIDE. [Concomitant]
     Active Substance: GLIPIZIDE
  4. LISINOPRIL. [Concomitant]
     Active Substance: LISINOPRIL
  5. LEVOTHYROXINE. [Concomitant]
     Active Substance: LEVOTHYROXINE
  6. NEXIUM [Suspect]
     Active Substance: ESOMEPRAZOLE MAGNESIUM
     Route: 048
     Dates: start: 199901, end: 201710
  7. PRILOSEC [Suspect]
     Active Substance: OMEPRAZOLE MAGNESIUM
     Indication: GASTROOESOPHAGEAL REFLUX DISEASE
     Route: 048
     Dates: start: 199901, end: 201710
  8. PRILOSEC OTC [Suspect]
     Active Substance: OMEPRAZOLE MAGNESIUM
     Route: 048
     Dates: start: 199901, end: 201710
  9. BIOTIN [Concomitant]
     Active Substance: BIOTIN
  10. CHOLECALCIFEROL [Concomitant]
     Active Substance: CHOLECALCIFEROL
  11. CARVEDILOL. [Concomitant]
     Active Substance: CARVEDILOL
  12. AMLODIPINE BESYLATE. [Concomitant]
     Active Substance: AMLODIPINE BESYLATE
  13. ASPIRIN. [Concomitant]
     Active Substance: ASPIRIN
  14. JANUVIA [Concomitant]
     Active Substance: SITAGLIPTIN PHOSPHATE
  15. FUROSEMIDE. [Concomitant]
     Active Substance: FUROSEMIDE
  16. ATORVASTATIN CALCIUM. [Concomitant]
     Active Substance: ATORVASTATIN CALCIUM
  17. FUROSEMIDE. [Concomitant]
     Active Substance: FUROSEMIDE
  18. SERTRALINE [Concomitant]
     Active Substance: SERTRALINE HYDROCHLORIDE
  19. PROPRANOLOL [Concomitant]
     Active Substance: PROPRANOLOL HYDROCHLORIDE
  20. ACETAMINOPHEN. [Concomitant]
     Active Substance: ACETAMINOPHEN
  21. PREDNISONE. [Concomitant]
     Active Substance: PREDNISONE
  22. CARVEDILOL. [Concomitant]
     Active Substance: CARVEDILOL

REACTIONS (5)
  - End stage renal disease [Unknown]
  - Chronic kidney disease [Not Recovered/Not Resolved]
  - Acute kidney injury [Unknown]
  - Tubulointerstitial nephritis [Unknown]
  - Renal injury [Unknown]

NARRATIVE: CASE EVENT DATE: 2014
